FAERS Safety Report 7030017-2 (Version None)
Quarter: 2010Q4

REPORT INFORMATION
  Report Type: 
  Country: None (occurrence: None)
  Receive Date: 20101006
  Receipt Date: 20100927
  Transmission Date: 20110411
  Serious: Yes (Other)
  Sender: FDA-Public Use
  Company Number: PHFR2010GB04255

PATIENT
  Sex: Male

DRUGS (2)
  1. CLOZARIL [Suspect]
     Indication: SCHIZOPHRENIA
     Route: 048
     Dates: start: 19990830, end: 20050411
  2. CLOZARIL [Suspect]
     Dosage: 350 MG
     Route: 048
     Dates: start: 20100510

REACTIONS (2)
  - IMMUNODEFICIENCY [None]
  - MENINGITIS TUBERCULOUS [None]
